FAERS Safety Report 9008393 (Version 2)
Quarter: 2013Q1

REPORT INFORMATION
  Report Type: Spontaneous
  Country: IT (occurrence: IT)
  Receive Date: 20130111
  Receipt Date: 20130124
  Transmission Date: 20140127
  Serious: Yes (Hospitalization)
  Sender: FDA-Public Use
  Company Number: IT-SANOFI-AVENTIS-2013SA000682

PATIENT
  Age: 74 Year
  Sex: Female

DRUGS (11)
  1. PLAVIX [Suspect]
     Indication: PROPHYLAXIS
     Route: 048
     Dates: start: 20120918, end: 20121112
  2. CARDIOASPIRIN [Interacting]
     Indication: PROPHYLAXIS
     Route: 048
     Dates: start: 20120918, end: 20121112
  3. COUMADIN [Interacting]
     Indication: PROPHYLAXIS
     Route: 048
     Dates: start: 20100401, end: 20121112
  4. ENALAPRIL [Concomitant]
     Route: 048
  5. FUROSEMIDE [Concomitant]
     Route: 048
  6. BISOPROLOL HEMIFUMARATE [Concomitant]
     Route: 048
  7. SPIRONOLACTONE [Concomitant]
     Route: 048
  8. ZOLPIDEM [Concomitant]
     Route: 048
  9. EUTIROX [Concomitant]
     Route: 048
  10. HUMALOG [Concomitant]
     Route: 058
  11. INSULIN DETEMIR [Concomitant]
     Route: 058

REACTIONS (4)
  - Gastrointestinal haemorrhage [Unknown]
  - Drug interaction [Unknown]
  - Anaemia [Unknown]
  - International normalised ratio increased [Unknown]
